FAERS Safety Report 19772481 (Version 2)
Quarter: 2021Q4

REPORT INFORMATION
  Report Type: Spontaneous
  Country: US (occurrence: US)
  Receive Date: 20210901
  Receipt Date: 20211013
  Transmission Date: 20220303
  Serious: No
  Sender: FDA-Public Use
  Company Number: US-PFIZER INC-202101000905

PATIENT
  Age: 10 Year
  Sex: Female
  Weight: 25.85 kg

DRUGS (1)
  1. GENOTROPIN [Suspect]
     Active Substance: SOMATROPIN
     Indication: Growth hormone deficiency
     Dosage: UNK, 1X/DAY [BETWEEN 1.4 - 1.6 MG INJECTION EVERY NIGHT]
     Dates: start: 2020

REACTIONS (3)
  - Device information output issue [Unknown]
  - Device physical property issue [Unknown]
  - Poor quality device used [Unknown]

NARRATIVE: CASE EVENT DATE: 20210701
